FAERS Safety Report 4786076-0 (Version None)
Quarter: 2005Q3

REPORT INFORMATION
  Report Type: 
  Country: None (occurrence: None)
  Receive Date: 20050930
  Receipt Date: 20050915
  Transmission Date: 20060218
  Serious: Yes (Hospitalization)
  Sender: FDA-Public Use
  Company Number: 2005EU000653

PATIENT
  Age: 46 Year
  Sex: Male

DRUGS (6)
  1. FK506  (TACROLIMUS) [Suspect]
     Indication: LIVER TRANSPLANT
     Dosage: 4.00 MG, /D, ORAL
     Route: 048
     Dates: start: 20041213
  2. METHYLPREDNISOLONE [Suspect]
     Indication: LIVER TRANSPLANT
     Dosage: UNK, UNKNOWN/D, UNK
     Dates: start: 20041212, end: 20050104
  3. PREDNISONE [Suspect]
     Indication: LIVER TRANSPLANT
     Dosage: 70 MG, UID/QD
     Dates: start: 20041227
  4. BACTRIM [Concomitant]
  5. GANCICLOVIR SODIUM [Concomitant]
  6. AMLODIPINE [Concomitant]

REACTIONS (7)
  - ATRIAL FIBRILLATION [None]
  - DISEASE RECURRENCE [None]
  - GLOMERULONEPHRITIS MEMBRANOPROLIFERATIVE [None]
  - HEPATITIS C [None]
  - HEPATITIS CHOLESTATIC [None]
  - HEPATITIS VIRAL [None]
  - HYPERLIPIDAEMIA [None]
